FAERS Safety Report 20430774 (Version 1)
Quarter: 2022Q1

REPORT INFORMATION
  Report Type: Report from Study
  Country: FR (occurrence: FR)
  Receive Date: 20220204
  Receipt Date: 20220204
  Transmission Date: 20220423
  Serious: Yes (Hospitalization)
  Sender: FDA-Public Use
  Company Number: FR-SERVIER-S20012395

PATIENT

DRUGS (8)
  1. PEGASPARGASE [Suspect]
     Active Substance: PEGASPARGASE
     Indication: Acute lymphocytic leukaemia
     Dosage: 3525 IU, DAILY, D15 AND D43
     Route: 042
     Dates: start: 20200923
  2. TN UNSPECIFIED [Concomitant]
     Indication: Acute lymphocytic leukaemia
     Dosage: 1400 MG, D1 AND D29
     Route: 042
     Dates: start: 20200909, end: 20201009
  3. TN UNSPECIFIED [Concomitant]
     Indication: Acute lymphocytic leukaemia
     Dosage: 105 MG, D3 TO D6, D10 TO D13, D31 TO D34, D38
     Route: 042
     Dates: start: 20200911
  4. TN UNSPECIFIED [Concomitant]
     Dosage: 30 MG, D3 AND D31
     Route: 037
     Dates: start: 20200911, end: 20201012
  5. TN UNSPECIFIED [Concomitant]
     Indication: Acute lymphocytic leukaemia
     Dosage: 2 MG, D15, D22, D43, AND D50
     Route: 042
     Dates: start: 20200923
  6. TN UNSPECIFIED [Concomitant]
     Indication: Acute lymphocytic leukaemia
     Dosage: 15 MG, D3 AND D31
     Route: 037
     Dates: start: 20200911, end: 20201012
  7. TN UNSPECIFIED [Concomitant]
     Indication: Acute lymphocytic leukaemia
     Dosage: 15 MG, D3 AND D31
     Route: 037
     Dates: start: 20200911, end: 20201012
  8. TN UNSPECIFIED [Concomitant]
     Indication: Acute lymphocytic leukaemia
     Dosage: 50 MG, D1-D14 AND D29-D42
     Route: 048
     Dates: start: 20200909

REACTIONS (1)
  - Staphylococcal sepsis [Recovered/Resolved]

NARRATIVE: CASE EVENT DATE: 20201006
